FAERS Safety Report 11844858 (Version 2)
Quarter: 2016Q1

REPORT INFORMATION
  Report Type: Spontaneous
  Country: JP (occurrence: JP)
  Receive Date: 20151217
  Receipt Date: 20160115
  Transmission Date: 20160526
  Serious: Yes (Hospitalization)
  Sender: FDA-Public Use
  Company Number: JP-SA-2015SA210725

PATIENT
  Age: 80 Year
  Sex: Male

DRUGS (2)
  1. GLIMEPIRIDE. [Suspect]
     Active Substance: GLIMEPIRIDE
     Indication: DIABETES MELLITUS
     Dosage: AFTER BREAKFAST
     Route: 065
  2. GLIBENCLAMIDE [Concomitant]
     Active Substance: GLYBURIDE
     Indication: DIABETES MELLITUS

REACTIONS (4)
  - Cough [Recovered/Resolved]
  - X-ray abnormal [Recovered/Resolved]
  - Interstitial lung disease [Recovered/Resolved]
  - Computerised tomogram abnormal [Recovered/Resolved]
